FAERS Safety Report 21301288 (Version 2)
Quarter: 2022Q4

REPORT INFORMATION
  Report Type: Spontaneous
  Country: PT (occurrence: PT)
  Receive Date: 20220907
  Receipt Date: 20221028
  Transmission Date: 20230112
  Serious: Yes (Hospitalization, Other)
  Sender: FDA-Public Use
  Company Number: PT-INFARMED-T202208-2200

PATIENT
  Age: 19 Year
  Sex: Female
  Weight: 60 kg

DRUGS (2)
  1. RISPERDAL [Interacting]
     Active Substance: RISPERIDONE
     Indication: Depression
     Dosage: 1-2 TABLETS, QD
     Route: 048
  2. CERDELGA [Interacting]
     Active Substance: ELIGLUSTAT
     Indication: Gaucher^s disease type I
     Dosage: 84MG BID
     Route: 048
     Dates: start: 20220203

REACTIONS (2)
  - Supraventricular tachycardia [Recovered/Resolved]
  - Drug interaction [Unknown]

NARRATIVE: CASE EVENT DATE: 20220811
